FAERS Safety Report 4333146-7 (Version None)
Quarter: 2004Q1

REPORT INFORMATION
  Report Type: 
  Country: None (occurrence: None)
  Receive Date: 20040330
  Receipt Date: 20040316
  Transmission Date: 20041129
  Serious: Yes (Other)
  Sender: FDA-Public Use
  Company Number: 163-20785-04030356

PATIENT
  Age: 71 Year
  Sex: Male

DRUGS (1)
  1. THALOMID [Suspect]
     Dosage: 100 MG, DAILY, ORAL
     Route: 048
     Dates: start: 20030916, end: 20040212

REACTIONS (2)
  - ACUTE MYELOID LEUKAEMIA [None]
  - DISEASE PROGRESSION [None]
